FAERS Safety Report 4653132-7 (Version None)
Quarter: 2005Q2

REPORT INFORMATION
  Report Type: 
  Country: None (occurrence: None)
  Receive Date: 20050503
  Receipt Date: 20050420
  Transmission Date: 20051028
  Serious: Yes (Other)
  Sender: FDA-Public Use
  Company Number: 2005063199

PATIENT
  Age: 58 Year
  Sex: Female
  Weight: 68.0396 kg

DRUGS (8)
  1. BEXTRA [Suspect]
     Indication: RHEUMATOID ARTHRITIS
     Dosage: (1 IN 1D), ORAL
     Route: 048
     Dates: start: 20020101
  2. METHOTREXATE [Concomitant]
  3. LEVOTHYROXINE SODIUM [Concomitant]
  4. FOLIC ACID [Concomitant]
  5. ROSIGLITAZONE MALEATE (ROSILITAZONE MALEATE) [Concomitant]
  6. HYZAAR [Concomitant]
  7. ROSUVASTATIN [Concomitant]
  8. OMEPRAZOLE [Concomitant]

REACTIONS (6)
  - CONVULSION [None]
  - CORONARY ARTERIAL STENT INSERTION [None]
  - DYSPNOEA [None]
  - HEART RATE INCREASED [None]
  - PNEUMONIA [None]
  - RESPIRATORY DISORDER [None]
